FAERS Safety Report 5422399-X (Version None)
Quarter: 2007Q3

REPORT INFORMATION
  Report Type: 
  Country: None (occurrence: None)
  Receive Date: 20070822
  Receipt Date: 20070817
  Transmission Date: 20080115
  Serious: Yes (Death)
  Sender: FDA-Public Use
  Company Number: A0673894A

PATIENT
  Age: 63 Year
  Sex: Female

DRUGS (5)
  1. TYKERB [Suspect]
     Dosage: 1250MG PER DAY
     Route: 048
     Dates: start: 20070703, end: 20070731
  2. XELODA [Concomitant]
  3. OMEPRAZOLE [Concomitant]
  4. TAVANIC [Concomitant]
  5. AMIKACIN [Concomitant]

REACTIONS (6)
  - BREAST CANCER [None]
  - CONDITION AGGRAVATED [None]
  - CONJUNCTIVAL HAEMORRHAGE [None]
  - DIARRHOEA [None]
  - METASTASIS [None]
  - URINARY TRACT INFECTION [None]
